FAERS Safety Report 13047567 (Version 4)
Quarter: 2017Q1

REPORT INFORMATION
  Report Type: Spontaneous
  Country: US (occurrence: US)
  Receive Date: 20161220
  Receipt Date: 20170303
  Transmission Date: 20170428
  Serious: No
  Sender: FDA-Public Use
  Company Number: US-ACTELION-A-NJ2016-146949

PATIENT
  Age: 64 Year
  Sex: Male
  Weight: 104.31 kg

DRUGS (4)
  1. UPTRAVI [Suspect]
     Active Substance: SELEXIPAG
     Dosage: 800 MCG, BID
     Route: 048
  2. UPTRAVI [Suspect]
     Active Substance: SELEXIPAG
     Dosage: 1000 MCG, BID
     Route: 048
  3. UPTRAVI [Suspect]
     Active Substance: SELEXIPAG
     Indication: PULMONARY ARTERIAL HYPERTENSION
     Dosage: 200 MCG, BID
     Route: 048
     Dates: start: 20161208
  4. UPTRAVI [Suspect]
     Active Substance: SELEXIPAG
     Dosage: 800 MCG QAM/ 1000 MCG QPM
     Route: 048

REACTIONS (10)
  - Fatigue [Unknown]
  - Sleep disorder [Unknown]
  - Malaise [Unknown]
  - Pain in jaw [Unknown]
  - Blood glucose increased [Unknown]
  - Pain [Unknown]
  - Headache [Unknown]
  - Influenza like illness [Unknown]
  - Limb discomfort [Unknown]
  - Epistaxis [Unknown]

NARRATIVE: CASE EVENT DATE: 20161211
